FAERS Safety Report 8970870 (Version 3)
Quarter: 2013Q2

REPORT INFORMATION
  Report Type: Spontaneous
  Country: GB (occurrence: GB)
  Receive Date: 20121218
  Receipt Date: 20130402
  Transmission Date: 20140414
  Serious: Yes (Other)
  Sender: FDA-Public Use
  Company Number: GB-PFIZER INC-2012314790

PATIENT
  Age: 55 Year
  Sex: Male

DRUGS (9)
  1. AMLODIPINE BESILATE [Suspect]
     Indication: HYPERTENSION
     Dosage: 5 MG, UNK
     Route: 048
  2. AMLODIPINE BESILATE [Interacting]
     Dosage: 10 MG, UNK
     Route: 048
     Dates: end: 20120711
  3. RAMIPRIL [Suspect]
     Indication: HYPERTENSION
     Dosage: 2.5 MG, UNK
     Route: 048
  4. RAMIPRIL [Suspect]
     Dosage: 5 MG, UNK
     Route: 048
  5. RAMIPRIL [Suspect]
     Dosage: 10 MG, UNK
     Route: 048
     Dates: end: 20120711
  6. LOSARTAN [Suspect]
     Dosage: 100 MG, UNK
     Route: 048
  7. SIMVASTATIN [Interacting]
     Indication: BLOOD CHOLESTEROL INCREASED
     Dosage: 40 MG, TAKEN FOR 1 YEAR
     Route: 048
     Dates: start: 20110613, end: 20120925
  8. LERCANIDIPINE [Suspect]
     Indication: BLOOD PRESSURE
     Dosage: 20 MG, UNK
     Route: 048
  9. PRAVASTATIN SODIUM [Suspect]
     Dosage: 40 MG
     Dates: end: 20121206

REACTIONS (15)
  - Confusional state [Unknown]
  - Osteoarthritis [Unknown]
  - Gait disturbance [Unknown]
  - Dysstasia [Unknown]
  - Myalgia [Unknown]
  - Blood pressure increased [Unknown]
  - Feeling abnormal [Unknown]
  - Depressed mood [Unknown]
  - Throat irritation [Unknown]
  - Fatigue [Unknown]
  - Drug interaction [Unknown]
  - Product quality issue [Unknown]
  - Dyspnoea [Unknown]
  - Mental impairment [Unknown]
  - Nightmare [Unknown]
